FAERS Safety Report 8263838-9 (Version None)
Quarter: 2012Q2

REPORT INFORMATION
  Report Type: 
  Country: None (occurrence: None)
  Receive Date: 20120405
  Receipt Date: 20120328
  Transmission Date: 20120825
  Serious: Yes (Hospitalization)
  Sender: FDA-Public Use
  Company Number: JP-MERCK-1203USA02411

PATIENT
  Age: 66 Year
  Sex: Female
  Weight: 50 kg

DRUGS (2)
  1. FOSAMAX [Suspect]
     Indication: OSTEOPOROSIS
     Route: 048
     Dates: start: 20070101, end: 20111201
  2. BONOTEO [Concomitant]
     Indication: OSTEOPOROSIS
     Dosage: ONCE A MONTH
     Route: 048
     Dates: start: 20120101

REACTIONS (2)
  - RIB FRACTURE [None]
  - FEMUR FRACTURE [None]
